FAERS Safety Report 15322863 (Version 1)
Quarter: 2018Q3

REPORT INFORMATION
  Report Type: Spontaneous
  Country: US (occurrence: US)
  Receive Date: 20180821
  Receipt Date: 20180821
  Transmission Date: 20181010
  Serious: Yes (Disabling)
  Sender: FDA-Public Use
  Company Number: None

PATIENT
  Age: 63 Year
  Sex: Female
  Weight: 95.25 kg

DRUGS (9)
  1. PRAVASTATIN. [Concomitant]
     Active Substance: PRAVASTATIN
  2. LOSARTAN. [Concomitant]
     Active Substance: LOSARTAN
  3. HCTZ [Concomitant]
     Active Substance: HYDROCHLOROTHIAZIDE
  4. METOPROLOL TART [Concomitant]
     Active Substance: METOPROLOL TARTRATE
  5. METFORMIN [Concomitant]
     Active Substance: METFORMIN HYDROCHLORIDE
  6. MONTELUKAST [Concomitant]
     Active Substance: MONTELUKAST SODIUM
  7. BRIMONIDINE TARTRATE OPHTHALMIC SOLUTION 0.2% (5ML STERILE) [Suspect]
     Active Substance: BRIMONIDINE TARTRATE
     Indication: GLAUCOMA
     Dosage: ?          QUANTITY:1 GTT DROP(S);OTHER ROUTE:EYE DROP?
     Dates: start: 2016, end: 2017
  8. ASA [Concomitant]
     Active Substance: ASPIRIN
  9. ASPRIN [Concomitant]
     Active Substance: ASPIRIN

REACTIONS (3)
  - Anosmia [None]
  - Skin odour abnormal [None]
  - Breath odour [None]

NARRATIVE: CASE EVENT DATE: 2016
